FAERS Safety Report 8214788-5 (Version None)
Quarter: 2012Q1

REPORT INFORMATION
  Report Type: 
  Country: None (occurrence: None)
  Receive Date: 20120316
  Receipt Date: 20120307
  Transmission Date: 20120608
  Serious: Yes (Other)
  Sender: FDA-Public Use
  Company Number: US-SANOFI-AVENTIS-2012SA015889

PATIENT
  Age: 82 Year
  Sex: Male

DRUGS (11)
  1. BLINDED THERAPY [Suspect]
     Indication: ANTIPLATELET THERAPY
     Dates: start: 20110107, end: 20120202
  2. ASPIRIN [Suspect]
     Indication: CORONARY ARTERY DISEASE
     Route: 048
     Dates: start: 20100120
  3. HUMULIN 70/30 [Concomitant]
     Dates: start: 19640101
  4. LIPITOR [Concomitant]
     Dates: start: 20050401
  5. PROTONIX [Concomitant]
     Dates: start: 20090501
  6. LOVENOX [Concomitant]
     Dates: start: 20100204
  7. LISINOPRIL [Concomitant]
     Dates: start: 20100225
  8. METOPROLOL SUCCINATE [Concomitant]
     Dates: start: 20100225
  9. LOPRESSOR [Concomitant]
     Dates: start: 20050401
  10. ALL OTHER THERAPEUTIC PRODUCTS [Suspect]
     Dates: start: 20100121, end: 20100121
  11. NORVASC [Concomitant]
     Dates: start: 20040401

REACTIONS (1)
  - CORONARY ARTERY STENOSIS [None]
